FAERS Safety Report 7085416-X (Version None)
Quarter: 2010Q4

REPORT INFORMATION
  Report Type: 
  Country: None (occurrence: None)
  Receive Date: 20101105
  Receipt Date: 20101027
  Transmission Date: 20110411
  Serious: Yes (Life-Threatening, Other)
  Sender: FDA-Public Use
  Company Number: FR-PFIZER INC-2010102614

PATIENT
  Age: 9 Year
  Sex: Male

DRUGS (14)
  1. ATARAX [Suspect]
     Indication: AGITATION
     Dosage: UNK
     Dates: start: 20100501, end: 20100604
  2. ATARAX [Suspect]
     Indication: ANXIETY
     Dosage: 200 MG, UNK
     Route: 048
     Dates: start: 20100621, end: 20100629
  3. ATARAX [Suspect]
     Dosage: UNK MG, UNK
  4. ARTANE [Suspect]
     Indication: PARKINSON'S DISEASE
     Dosage: 30 MG DAILY
     Route: 048
     Dates: start: 20100623, end: 20100629
  5. METHYLPHENIDATE [Suspect]
     Indication: ABNORMAL BEHAVIOUR
     Dosage: UNK
     Route: 048
     Dates: start: 20080101, end: 20100501
  6. METHYLPHENIDATE [Suspect]
     Dosage: 25 MG DAILY
     Route: 048
     Dates: start: 20100621, end: 20100629
  7. NEULEPTIL [Suspect]
     Dosage: 10 ORAL DROPS IN MORNING AND 20 ORAL DROPS AT LUNCH AND AT NIGHT
     Dates: start: 20100515, end: 20100530
  8. CONCERTA [Suspect]
     Dosage: UNK
     Dates: start: 20100531, end: 20100531
  9. LEPTICUR [Suspect]
     Dosage: UNK
     Dates: start: 20100604, end: 20100621
  10. RIVOTRIL [Suspect]
     Dosage: UNK
     Dates: start: 20100604, end: 20100621
  11. NOPRON [Suspect]
     Dosage: UNK
     Dates: start: 20100628, end: 20100629
  12. RISPERDAL [Concomitant]
     Dosage: 1 MG, 2X/DAY
     Dates: start: 20080101, end: 20100530
  13. RISPERDAL [Concomitant]
     Dosage: UNK
     Dates: start: 20100531
  14. TERCIAN [Concomitant]
     Dosage: 12.5 MG, 2X/DAY
     Dates: start: 20080101, end: 20100531

REACTIONS (15)
  - AGGRESSION [None]
  - AGITATION [None]
  - ALTERED STATE OF CONSCIOUSNESS [None]
  - CYTOLYTIC HEPATITIS [None]
  - DEHYDRATION [None]
  - DRY SKIN [None]
  - DYSKINESIA [None]
  - GENERAL PHYSICAL CONDITION ABNORMAL [None]
  - HYPERTHERMIA [None]
  - HYPOTONIA [None]
  - PNEUMONIA ASPIRATION [None]
  - RENAL FAILURE ACUTE [None]
  - RESPIRATORY DISTRESS [None]
  - RHABDOMYOLYSIS [None]
  - TACHYCARDIA [None]
